FAERS Safety Report 10136196 (Version 1)
Quarter: 2014Q2

REPORT INFORMATION
  Report Type: Spontaneous
  Country: US (occurrence: US)
  Receive Date: 20140429
  Receipt Date: 20140429
  Transmission Date: 20141212
  Serious: No
  Sender: FDA-Public Use
  Company Number: US-B.I. PHARMACEUTICALS,INC./RIDGEFIELD-2014-BI-18036BP

PATIENT
  Age: 78 Year
  Sex: Male

DRUGS (9)
  1. PRADAXA [Suspect]
     Indication: PRODUCT USED FOR UNKNOWN INDICATION
     Dosage: 150 MG
     Route: 048
     Dates: end: 20140401
  2. OMEPRAZOLE [Concomitant]
     Indication: GASTRIC ULCER
     Dosage: 40 MG
     Route: 048
  3. FLOVENT [Concomitant]
     Indication: CHRONIC OBSTRUCTIVE PULMONARY DISEASE
     Route: 055
  4. SPIRIVA [Concomitant]
     Indication: CHRONIC OBSTRUCTIVE PULMONARY DISEASE
     Dosage: 18 MCG
     Route: 055
  5. LISINOPRIL [Concomitant]
     Indication: HYPERTENSION
     Dosage: 40 MG
     Route: 048
  6. ATENOLOL [Concomitant]
     Indication: HYPERTENSION
     Dosage: 100 MG
     Route: 048
  7. LOSARTAN WITH POTASSIUM [Concomitant]
     Indication: HYPERTENSION
     Dosage: 100 MG
     Route: 048
  8. FUROSEMIDE [Concomitant]
     Indication: HYPERTENSION
     Dosage: 20 MG
     Route: 048
  9. ALLOPURINOL [Concomitant]
     Indication: GOUT
     Dosage: 300 MG
     Route: 048

REACTIONS (1)
  - Contusion [Not Recovered/Not Resolved]
